FAERS Safety Report 16150097 (Version 6)
Quarter: 2020Q2

REPORT INFORMATION
  Report Type: Report from Study
  Country: CN (occurrence: CN)
  Receive Date: 20190402
  Receipt Date: 20200616
  Transmission Date: 20200713
  Serious: Yes (Hospitalization, Other)
  Sender: FDA-Public Use
  Company Number: CN-BRISTOL-MYERS SQUIBB COMPANY-BMS-2019-030917

PATIENT
  Age: 49 Year
  Sex: Female
  Weight: 42 kg

DRUGS (3)
  1. NIVOLUMAB [Suspect]
     Active Substance: NIVOLUMAB
     Indication: GASTROOESOPHAGEAL CANCER
     Dosage: 360 MILLIGRAM
     Route: 042
     Dates: start: 20190304, end: 20190304
  2. CAPECITABINE. [Suspect]
     Active Substance: CAPECITABINE
     Indication: GASTROOESOPHAGEAL CANCER
     Dosage: 2600 MILLIGRAM
     Route: 048
     Dates: start: 20190304, end: 20190306
  3. OXALIPLATIN. [Suspect]
     Active Substance: OXALIPLATIN
     Indication: GASTROOESOPHAGEAL CANCER
     Dosage: 130 MILLIGRAM/SQ. METER
     Route: 042
     Dates: start: 20190304, end: 20190304

REACTIONS (3)
  - Electrolyte imbalance [Recovered/Resolved]
  - Immune-mediated hepatitis [Recovered/Resolved]
  - Thrombocytopenia [Recovered/Resolved]

NARRATIVE: CASE EVENT DATE: 20190326
